FAERS Safety Report 8772995 (Version 2)
Quarter: 2012Q4

REPORT INFORMATION
  Report Type: Report from Study
  Country: DE (occurrence: DE)
  Receive Date: 20120907
  Receipt Date: 20120922
  Transmission Date: 20130627
  Serious: Yes (Hospitalization)
  Sender: FDA-Public Use
  Company Number: DE-ABBOTT-12P-062-0975228-00

PATIENT
  Age: 56 Year
  Sex: Male
  Weight: 97 kg

DRUGS (2)
  1. KALETRA [Suspect]
     Indication: HIV INFECTION
     Dates: start: 20100112
  2. COMBIVIR [Concomitant]
     Indication: HIV INFECTION
     Dosage: 900 mg
     Dates: start: 20100112

REACTIONS (1)
  - Herpes zoster [Recovered/Resolved]
